FAERS Safety Report 20768964 (Version 1)
Quarter: 2022Q2

REPORT INFORMATION
  Report Type: Spontaneous
  Country: US (occurrence: US)
  Receive Date: 20220429
  Receipt Date: 20220429
  Transmission Date: 20220720
  Serious: No
  Sender: FDA-Public Use
  Company Number: US-TARO-2021TAR00541

PATIENT

DRUGS (1)
  1. FLUOROURACIL [Suspect]
     Active Substance: FLUOROURACIL
     Indication: Precancerous condition
     Dosage: USING IT FOR 2-3 WEEKS
     Route: 061
     Dates: start: 202105

REACTIONS (2)
  - Eye irritation [Unknown]
  - Erythema [Unknown]

NARRATIVE: CASE EVENT DATE: 20210501
